FAERS Safety Report 9459699 (Version 2)
Quarter: 2013Q4

REPORT INFORMATION
  Report Type: Spontaneous
  Country: RU (occurrence: RU)
  Receive Date: 20130815
  Receipt Date: 20131004
  Transmission Date: 20140711
  Serious: Yes (Other)
  Sender: FDA-Public Use
  Company Number: RU-BAYER-2013-096097

PATIENT
  Sex: Female

DRUGS (2)
  1. MIRENA [Suspect]
     Indication: ADENOMYOSIS
     Dosage: 20 MCG/24HR, CONT
     Route: 015
     Dates: start: 2008
  2. MIRENA [Suspect]
     Indication: POLYMENORRHOEA
     Dosage: 20 MCG/24HR, CONT
     Route: 015
     Dates: start: 201307

REACTIONS (1)
  - Basal cell carcinoma [Recovered/Resolved]
